FAERS Safety Report 5127145-5 (Version None)
Quarter: 2006Q4

REPORT INFORMATION
  Report Type: 
  Country: None (occurrence: None)
  Receive Date: 20061013
  Receipt Date: 20061002
  Transmission Date: 20070319
  Serious: Yes (Hospitalization, Disabling)
  Sender: FDA-Public Use
  Company Number: GB-GILEAD-2006-0010403

PATIENT
  Age: 38 Year
  Sex: Male

DRUGS (4)
  1. VIREAD [Suspect]
     Indication: HIV INFECTION
     Dates: start: 20030901
  2. LOPINAVIR W/RITONAVIR [Suspect]
     Indication: HIV INFECTION
     Dates: start: 20030901
  3. FOSAMPRENAVIR [Suspect]
     Indication: HIV INFECTION
     Dates: start: 20030901
  4. RITONAVIR [Suspect]
     Indication: HIV INFECTION
     Dates: start: 20030901

REACTIONS (3)
  - IMMUNE RECONSTITUTION SYNDROME [None]
  - KAPOSI'S SARCOMA [None]
  - LYMPHOEDEMA [None]
